FAERS Safety Report 13745201 (Version 3)
Quarter: 2017Q3

REPORT INFORMATION
  Report Type: Report from Study
  Country: CA (occurrence: CA)
  Receive Date: 20170712
  Receipt Date: 20170920
  Transmission Date: 20171127
  Serious: Yes (Hospitalization, Other)
  Sender: FDA-Public Use
  Company Number: CA-TAKEDA-2017TUS014582

PATIENT
  Age: 43 Year
  Sex: Male
  Weight: 74.7 kg

DRUGS (1)
  1. VEDOLIZUMAB [Suspect]
     Active Substance: VEDOLIZUMAB
     Indication: CROHN^S DISEASE
     Dosage: 300 MG, UNK
     Route: 042
     Dates: start: 20170619

REACTIONS (3)
  - Intestinal obstruction [Unknown]
  - Fistula [Unknown]
  - Abscess intestinal [Unknown]

NARRATIVE: CASE EVENT DATE: 201706
